FAERS Safety Report 5561883-5 (Version None)
Quarter: 2007Q4

REPORT INFORMATION
  Report Type: 
  Country: None (occurrence: None)
  Receive Date: 20071215
  Receipt Date: 20071005
  Transmission Date: 20080405
  Serious: No
  Sender: FDA-Public Use
  Company Number: US-AMGEN-KDL246751

PATIENT
  Sex: Female

DRUGS (1)
  1. ENBREL [Suspect]
     Indication: RHEUMATOID ARTHRITIS
     Route: 058
     Dates: start: 20070905

REACTIONS (5)
  - EYE DISCHARGE [None]
  - EYE INFLAMMATION [None]
  - EYE PRURITUS [None]
  - HEADACHE [None]
  - INFLUENZA LIKE ILLNESS [None]
